FAERS Safety Report 10094527 (Version 2)
Quarter: 2014Q2

REPORT INFORMATION
  Report Type: Spontaneous
  Country: US (occurrence: US)
  Receive Date: 20140422
  Receipt Date: 20140502
  Transmission Date: 20141212
  Serious: No
  Sender: FDA-Public Use
  Company Number: US-009507513-1404USA009393

PATIENT
  Age: 71 Year
  Sex: Male

DRUGS (5)
  1. TICE BCG LIVE [Suspect]
     Indication: BLADDER CANCER
     Dosage: 50 ML, ONCE
     Route: 043
     Dates: start: 20140415, end: 20140415
  2. ASPIRIN [Concomitant]
     Dosage: UNK
  3. PLAVIX [Concomitant]
     Dosage: UNK
  4. DIOVAN [Concomitant]
     Dosage: UNK
  5. ZOCOR [Concomitant]
     Dosage: UNK
     Route: 048

REACTIONS (1)
  - Incontinence [Unknown]
